FAERS Safety Report 4535022-3 (Version None)
Quarter: 2004Q4

REPORT INFORMATION
  Report Type: 
  Country: None (occurrence: None)
  Receive Date: 20041214
  Receipt Date: 20041115
  Transmission Date: 20050328
  Serious: Yes (Hospitalization)
  Sender: FDA-Public Use
  Company Number: 2004097121

PATIENT
  Age: 62 Year
  Sex: Female

DRUGS (10)
  1. BEXTRA [Suspect]
     Indication: SURGERY
     Dosage: UNKNOWN
     Route: 065
  2. BETASERON [Suspect]
     Indication: MULTIPLE SCLEROSIS
     Dosage: 8 MIU (EVERY OTHER DAY), SUBCUTANEOUS
     Route: 058
     Dates: start: 20040413, end: 20040813
  3. SIMVASTATIN [Concomitant]
  4. METHYLPREDNISOLONE [Concomitant]
  5. CLOMIPRAMINE HCL [Concomitant]
  6. TRAZODONE HCL [Concomitant]
  7. NADOLOL [Concomitant]
  8. FENOFIBRATE [Concomitant]
  9. ROSIGLITAZONE MALEATE [Concomitant]
  10. ESOMEPRAZOLE (ESOMEPRAZOLE) [Concomitant]

REACTIONS (2)
  - RECTAL HAEMORRHAGE [None]
  - URINARY TRACT INFECTION [None]
